FAERS Safety Report 21546218 (Version 1)
Quarter: 2022Q4

REPORT INFORMATION
  Report Type: Spontaneous
  Country: DE (occurrence: DE)
  Receive Date: 20221103
  Receipt Date: 20221103
  Transmission Date: 20230113
  Serious: Yes (Other)
  Sender: FDA-Public Use
  Company Number: None

PATIENT
  Sex: Male

DRUGS (2)
  1. ASPIRIN [Suspect]
     Active Substance: ASPIRIN
     Indication: Aortic aneurysm
     Dosage: UNK
     Route: 065
     Dates: start: 2022
  2. ASPIRIN [Suspect]
     Active Substance: ASPIRIN
     Indication: Prosthetic vessel implantation

REACTIONS (8)
  - Blood pressure increased [Recovered/Resolved]
  - Pyrexia [Unknown]
  - Asthenia [Unknown]
  - Asthenia [Unknown]
  - Asthenia [Unknown]
  - Heart rate increased [Recovered/Resolved]
  - Decreased appetite [Unknown]
  - Rash macular [Unknown]

NARRATIVE: CASE EVENT DATE: 20220101
